FAERS Safety Report 12230457 (Version 2)
Quarter: 2016Q2

REPORT INFORMATION
  Report Type: Spontaneous
  Country: US (occurrence: US)
  Receive Date: 20160401
  Receipt Date: 20160421
  Transmission Date: 20160815
  Serious: Yes (Other)
  Sender: FDA-Public Use
  Company Number: US-009507513-1603USA011443

PATIENT
  Sex: Female
  Weight: 80.73 kg

DRUGS (7)
  1. FUROSEMIDE. [Concomitant]
     Active Substance: FUROSEMIDE
     Indication: FLUID RETENTION
     Dosage: 40 MG, QD
     Route: 048
     Dates: start: 2013
  2. PRINIVIL [Suspect]
     Active Substance: LISINOPRIL
     Dosage: UNK
     Route: 048
  3. CITALOPRAM [Concomitant]
     Active Substance: CITALOPRAM HYDROBROMIDE
     Dosage: 20 MG, TABLET, DAILY
     Route: 048
  4. INSULIN (+) INSULIN, ISOPHANE [Concomitant]
     Indication: DIABETES MELLITUS
     Dosage: 70 UNITS IN THE MORNING AND 30 UNITS AT NIGHT
     Route: 058
  5. WARFARIN [Concomitant]
     Active Substance: WARFARIN
     Indication: CARDIAC DISORDER
     Dosage: 5 MG TABLET. 1 PILL MONDAY, WEDNESDAY AND FRIDAY AND 1/2 TABLET TUESDAY, THURSDAY, SATURDAY, SUNDAY
     Route: 048
     Dates: start: 2005
  6. METOPROLOL SUCCINATE. [Suspect]
     Active Substance: METOPROLOL SUCCINATE
     Indication: CARDIAC DISORDER
     Dosage: 1/2 OF A 25 MG TABLET, ONCE DAILY
     Route: 048
     Dates: start: 2014
  7. SPIRONOLACTONE. [Concomitant]
     Active Substance: SPIRONOLACTONE
     Indication: CARDIAC DISORDER
     Dosage: 25 MG TABLET, 1/2 TABLET DAILY
     Route: 048
     Dates: start: 2014

REACTIONS (3)
  - Breast cancer female [Unknown]
  - Dizziness [Unknown]
  - Skin cancer [Unknown]

NARRATIVE: CASE EVENT DATE: 2014
